FAERS Safety Report 6198950-1 (Version None)
Quarter: 2009Q2

REPORT INFORMATION
  Report Type: 
  Country: None (occurrence: None)
  Receive Date: 20090522
  Receipt Date: 20090511
  Transmission Date: 20091009
  Serious: Yes (Hospitalization)
  Sender: FDA-Public Use
  Company Number: US-JNJFOC-20090204081

PATIENT
  Sex: Female
  Weight: 67.59 kg

DRUGS (14)
  1. REMICADE [Suspect]
     Route: 042
  2. REMICADE [Suspect]
     Indication: COLITIS ULCERATIVE
     Route: 042
  3. ENBREL [Suspect]
     Indication: DRUG USE FOR UNKNOWN INDICATION
  4. FLAGYL [Concomitant]
     Indication: BAND NEUTROPHIL COUNT INCREASED
  5. LEVAQUIN [Concomitant]
     Indication: BAND NEUTROPHIL COUNT INCREASED
  6. SOLU-MEDROL [Concomitant]
     Indication: COLITIS ULCERATIVE
  7. ANTI NAUSEA [Concomitant]
  8. LEXAPRO [Concomitant]
     Indication: DEPRESSION
     Route: 048
  9. WELLBUTRIN [Concomitant]
     Indication: DEPRESSION
  10. PREDNISONE [Concomitant]
  11. PREDNISONE [Concomitant]
     Indication: COLITIS ULCERATIVE
  12. CANASA [Concomitant]
     Indication: COLITIS ULCERATIVE
  13. ANTI-COAGULANT THERAPY [Concomitant]
     Indication: THROMBOSIS PROPHYLAXIS
  14. MULTI-VITAMIN [Concomitant]

REACTIONS (12)
  - ANXIETY [None]
  - AORTIC THROMBOSIS [None]
  - DEEP VEIN THROMBOSIS [None]
  - DRY MOUTH [None]
  - FATIGUE [None]
  - INFLAMMATORY BOWEL DISEASE [None]
  - INFLUENZA LIKE ILLNESS [None]
  - OEDEMA PERIPHERAL [None]
  - ORAL PAIN [None]
  - PULMONARY EMBOLISM [None]
  - RETCHING [None]
  - WHITE BLOOD CELL COUNT INCREASED [None]
